FAERS Safety Report 8011236-5 (Version None)
Quarter: 2011Q4

REPORT INFORMATION
  Report Type: 
  Country: None (occurrence: None)
  Receive Date: 20111227
  Receipt Date: 20111227
  Transmission Date: 20120403
  Serious: Yes (Other)
  Sender: FDA-Public Use
  Company Number: None

PATIENT
  Age: 44 Year
  Sex: Female
  Weight: 79.378 kg

DRUGS (2)
  1. GADOLINIUM [Suspect]
     Indication: OPTIC NEURITIS
     Dosage: 1 INJECTION
     Route: 042
     Dates: start: 20110616, end: 20110616
  2. GADOLINIUM [Concomitant]
     Indication: INVESTIGATION
     Dosage: 1+PARTIAL INJECTION
     Route: 042
     Dates: start: 20110906, end: 20110906

REACTIONS (17)
  - HYPOAESTHESIA [None]
  - PRURITUS [None]
  - INJECTION SITE MASS [None]
  - HYPERHIDROSIS [None]
  - PARAESTHESIA [None]
  - OEDEMA PERIPHERAL [None]
  - WEIGHT INCREASED [None]
  - NIGHT SWEATS [None]
  - MUSCLE TWITCHING [None]
  - PAIN IN EXTREMITY [None]
  - ABDOMINAL DISTENSION [None]
  - FLUID RETENTION [None]
  - RASH [None]
  - WRONG TECHNIQUE IN DRUG USAGE PROCESS [None]
  - WAIST CIRCUMFERENCE INCREASED [None]
  - SKIN DISCOLOURATION [None]
  - BLOOD PRESSURE INCREASED [None]
